FAERS Safety Report 4493537-0 (Version None)
Quarter: 2004Q4

REPORT INFORMATION
  Report Type: 
  Country: None (occurrence: None)
  Receive Date: 20041102
  Receipt Date: 20041102
  Transmission Date: 20050328
  Serious: Yes (Hospitalization)
  Sender: FDA-Public Use
  Company Number: None

PATIENT
  Age: 81 Year
  Sex: Female

DRUGS (16)
  1. WARFARIN SODIUM [Suspect]
     Dosage: 5 MG   EVERY SU, W, F     ORAL
     Route: 048
  2. WARFARIN SODIUM [Suspect]
     Dosage: 2.5 MG     REST OF WEEK     ORAL
     Route: 048
  3. ATORVASTATIN CALCIUM [Concomitant]
  4. BENAZEPRIL HCL [Concomitant]
  5. BUSPIRONE [Concomitant]
  6. FLUOXETINE [Concomitant]
  7. FLONASE [Concomitant]
  8. FLOVENT [Concomitant]
  9. HYDROCHLOROTHIAZIDE [Concomitant]
  10. IPRATROPIUM BROMIDE [Concomitant]
  11. ISOSORBIDE MONONITRATE [Concomitant]
  12. LORAZEPAM [Concomitant]
  13. AMLODIPINE [Concomitant]
  14. ACETAMINOPHEN [Concomitant]
  15. ALBUTEROL [Concomitant]
  16. NITROGLYCERIN [Concomitant]

REACTIONS (2)
  - DIVERTICULUM INTESTINAL [None]
  - GASTROINTESTINAL HAEMORRHAGE [None]
